FAERS Safety Report 12400611 (Version 1)
Quarter: 2016Q2

REPORT INFORMATION
  Report Type: Spontaneous
  Country: US (occurrence: None)
  Receive Date: 20160524
  Receipt Date: 20160524
  Transmission Date: 20160815
  Serious: Yes (Hospitalization)
  Sender: FDA-Public Use
  Company Number: None

PATIENT
  Age: 96 Year
  Sex: Male
  Weight: 55.34 kg

DRUGS (1)
  1. FIRMAGON [Suspect]
     Active Substance: DEGARELIX ACETATE
     Indication: PROSTATE CANCER
     Dosage: 80 MG Q28D SUBCUTANEOUS
     Route: 058
     Dates: start: 20131030, end: 20160523

REACTIONS (7)
  - Abdominal pain [None]
  - Abdominal distension [None]
  - Refusal of treatment by patient [None]
  - Refusal of treatment by relative [None]
  - Injection site swelling [None]
  - Constipation [None]
  - Injection site pain [None]

NARRATIVE: CASE EVENT DATE: 20160520
